FAERS Safety Report 17273988 (Version 4)
Quarter: 2020Q4

REPORT INFORMATION
  Report Type: Report from Study
  Country: CO (occurrence: CO)
  Receive Date: 20200115
  Receipt Date: 20201012
  Transmission Date: 20210113
  Serious: Yes (Other)
  Sender: FDA-Public Use
  Company Number: CO-JNJFOC-20190625345

PATIENT
  Age: 45 Year
  Sex: Female
  Weight: 59 kg

DRUGS (14)
  1. FLUOXETINE [Concomitant]
     Active Substance: FLUOXETINE HYDROCHLORIDE
     Dosage: 1 CUP AT NIGHT
  2. SIMPONI [Suspect]
     Active Substance: GOLIMUMAB
     Indication: ANKYLOSING SPONDYLITIS
     Route: 058
     Dates: start: 20151109, end: 20180122
  3. SIMPONI [Suspect]
     Active Substance: GOLIMUMAB
     Route: 058
     Dates: start: 20191211
  4. NAPROXEN. [Concomitant]
     Active Substance: NAPROXEN
     Indication: PAIN MANAGEMENT
     Dosage: SPORADICALLY 2 TABLETS EVERY 8 HOURS
  5. SIMPONI [Suspect]
     Active Substance: GOLIMUMAB
     Route: 058
     Dates: start: 20180425, end: 20190120
  6. ESOMEPRAZOLE. [Concomitant]
     Active Substance: ESOMEPRAZOLE MAGNESIUM
     Dosage: 1 TABLET AT MORNING
  7. NAPROXEN. [Concomitant]
     Active Substance: NAPROXEN
     Dosage: SPORADICALLY 2 TABLETS EVERY 8 HOURS
  8. SIMPONI [Suspect]
     Active Substance: GOLIMUMAB
     Route: 058
     Dates: start: 20190610, end: 20190910
  9. LOSARTAN. [Concomitant]
     Active Substance: LOSARTAN
     Dosage: 1 TABLET AT MORNING AND OTHER AT NIGHT
  10. SIMPONI [Suspect]
     Active Substance: GOLIMUMAB
     Route: 058
     Dates: start: 20200521
  11. SIMPONI [Suspect]
     Active Substance: GOLIMUMAB
     Route: 058
     Dates: start: 20190307, end: 20190516
  12. ACETAMINOPHEN. [Concomitant]
     Active Substance: ACETAMINOPHEN
     Dosage: SPORADICALLY 2 TABLETS EVERY 8 HOURS
  13. ACETAMINOPHEN. [Concomitant]
     Active Substance: ACETAMINOPHEN
     Indication: PAIN MANAGEMENT
     Dosage: SPORADICALLY 2 TABLETS EVERY 8 HOURS
  14. OMEPRAZOLE. [Concomitant]
     Active Substance: OMEPRAZOLE

REACTIONS (5)
  - Glaucoma [Recovered/Resolved]
  - Cataract [Unknown]
  - Ankylosing spondylitis [Not Recovered/Not Resolved]
  - Acne [Recovering/Resolving]
  - Eye infection bacterial [Not Recovered/Not Resolved]

NARRATIVE: CASE EVENT DATE: 2019
